FAERS Safety Report 5366768-5 (Version None)
Quarter: 2007Q2

REPORT INFORMATION
  Report Type: 
  Country: None (occurrence: None)
  Receive Date: 20070622
  Receipt Date: 20060831
  Transmission Date: 20071010
  Serious: No
  Sender: FDA-Public Use
  Company Number: US-ASTRAZENECA-2006UW17236

PATIENT
  Age: 51 Year
  Sex: Female
  Weight: 72.6 kg

DRUGS (4)
  1. RHINOCORT [Suspect]
     Indication: RHINITIS ALLERGIC
     Dosage: 120 METER SPRAY/UNIT
     Route: 045
  2. ESTRACE [Concomitant]
  3. PRILOSEC [Concomitant]
  4. ZOLOFT [Concomitant]

REACTIONS (1)
  - WOUND [None]
